FAERS Safety Report 6384110-8 (Version None)
Quarter: 2009Q4

REPORT INFORMATION
  Report Type: 
  Country: None (occurrence: None)
  Receive Date: 20091001
  Receipt Date: 20090921
  Transmission Date: 20100525
  Serious: Yes (Other)
  Sender: FDA-Public Use
  Company Number: NL-KINGPHARMUSA00001-K200901184

PATIENT
  Age: 36 Year
  Sex: Male

DRUGS (5)
  1. SEPTRA [Suspect]
     Indication: PROPHYLAXIS
     Dosage: 960 MG, QD
  2. SEPTRA [Suspect]
     Dosage: 480 MG, QD
  3. LOPINAVIR AND RITONAVIR [Concomitant]
  4. LAMIVUDINE + ZIDOVUDINE [Concomitant]
  5. LOPERAMIDE OXIDE [Concomitant]

REACTIONS (7)
  - C-REACTIVE PROTEIN INCREASED [None]
  - DRUG ERUPTION [None]
  - EOSINOPHIL COUNT INCREASED [None]
  - PYREXIA [None]
  - RASH MORBILLIFORM [None]
  - TOXIC SKIN ERUPTION [None]
  - TYPE IV HYPERSENSITIVITY REACTION [None]
